FAERS Safety Report 12324929 (Version 1)
Quarter: 2016Q2

REPORT INFORMATION
  Report Type: Other
  Country: IT (occurrence: IT)
  Receive Date: 20160502
  Receipt Date: 20160502
  Transmission Date: 20160815
  Serious: Yes (Hospitalization)
  Sender: FDA-Public Use
  Company Number: IT-MYLANLABS-2016M1017729

PATIENT

DRUGS (12)
  1. LEVOFOLENE [Concomitant]
     Active Substance: LEVOLEUCOVORIN CALCIUM
     Indication: PRODUCT USED FOR UNKNOWN INDICATION
     Dosage: 200 MG/M2, UNK
  2. DEXAMETHASONE. [Concomitant]
     Active Substance: DEXAMETHASONE
     Dosage: 8 UNK, UNK
  3. ZOFRAN [Concomitant]
     Active Substance: ONDANSETRON HYDROCHLORIDE
     Indication: PROPHYLAXIS
     Dosage: 8 MG, UNK
     Route: 042
  4. FLUOROURACIL. [Suspect]
     Active Substance: FLUOROURACIL
     Indication: COLON CANCER
     Dosage: 400 MG/M2, UNK
     Route: 040
  5. FLUOROURACIL. [Suspect]
     Active Substance: FLUOROURACIL
     Dosage: 2400 MG/M2, UNK
  6. ONDANSETRON HYDROCHLORIDE. [Concomitant]
     Active Substance: ONDANSETRON HYDROCHLORIDE
     Indication: PROPHYLAXIS
     Dosage: 8 MG, UNK
     Route: 042
     Dates: start: 20160316, end: 20160330
  7. DELTACORTENE [Concomitant]
     Active Substance: PREDNISONE
     Indication: PRODUCT USED FOR UNKNOWN INDICATION
     Dosage: 1 DF, BID
  8. OXALIPLATIN. [Suspect]
     Active Substance: OXALIPLATIN
     Indication: COLON CANCER
     Dosage: 100 MG/M2, UNK
  9. DEXAMETHASONE. [Concomitant]
     Active Substance: DEXAMETHASONE
     Indication: PROPHYLAXIS
     Dosage: 12 MG, UNK
     Route: 042
     Dates: start: 20160316, end: 20160330
  10. OXALIPLATIN. [Suspect]
     Active Substance: OXALIPLATIN
     Dosage: 85 MG/M2, CYCLE
     Route: 042
     Dates: start: 20160316, end: 20160330
  11. FLUOROURACIL. [Suspect]
     Active Substance: FLUOROURACIL
     Dosage: 40 ?G/M2, CYCLE
     Route: 040
     Dates: start: 20160316, end: 20160330
  12. FLUOROURACIL. [Suspect]
     Active Substance: FLUOROURACIL
     Dosage: 2400 MG/M2, CYCLE
     Route: 042
     Dates: start: 20160316, end: 20160330

REACTIONS (3)
  - Atrial fibrillation [Recovered/Resolved with Sequelae]
  - Ventricular hypokinesia [Recovered/Resolved with Sequelae]
  - Electrocardiogram ST segment elevation [Recovered/Resolved with Sequelae]

NARRATIVE: CASE EVENT DATE: 20160401
